FAERS Safety Report 5753373-1 (Version None)
Quarter: 2008Q2

REPORT INFORMATION
  Report Type: 
  Country: None (occurrence: None)
  Receive Date: 20080530
  Receipt Date: 20080521
  Transmission Date: 20081010
  Serious: Yes (Hospitalization, Other)
  Sender: FDA-Public Use
  Company Number: US-ELI_LILLY_AND_COMPANY-US200805004241

PATIENT
  Age: 55 Year
  Sex: Male

DRUGS (2)
  1. GEMZAR [Suspect]
     Indication: PANCREATIC CARCINOMA
  2. COUMADIN [Concomitant]

REACTIONS (3)
  - PLATELET COUNT ABNORMAL [None]
  - PNEUMONIA [None]
  - SEPSIS [None]
